FAERS Safety Report 11697458 (Version 17)
Quarter: 2018Q2

REPORT INFORMATION
  Report Type: Spontaneous
  Country: US (occurrence: US)
  Receive Date: 20151104
  Receipt Date: 20180605
  Transmission Date: 20180711
  Serious: Yes (Hospitalization, Other)
  Sender: FDA-Public Use
  Company Number: US-PFIZER INC-2015349121

PATIENT
  Age: 61 Year
  Sex: Female
  Weight: 91.61 kg

DRUGS (15)
  1. IBRANCE [Suspect]
     Active Substance: PALBOCICLIB
     Dosage: 125 MG, CYCLIC (DAY1-21 EVERY 28 DAYS)
     Route: 048
  2. IBRANCE [Suspect]
     Active Substance: PALBOCICLIB
     Dosage: 1 DF, UNK
  3. IBRANCE [Suspect]
     Active Substance: PALBOCICLIB
     Dosage: 125 MG, CYCLIC(D1-21 Q28 DAYS)
     Route: 048
  4. IBRANCE [Suspect]
     Active Substance: PALBOCICLIB
     Dosage: 125 MG, CYCLIC [DAYS 1-21 Q28 DAYS]
     Route: 048
  5. IBRANCE [Suspect]
     Active Substance: PALBOCICLIB
     Dosage: 125 MG, CYCLIC (DAY 1-21 EVERY 28 DAYS)
     Route: 048
     Dates: end: 201612
  6. IBRANCE [Suspect]
     Active Substance: PALBOCICLIB
     Dosage: 125 MG, CYCLIC [DAYS 1-21 Q28 DAYS]
     Route: 048
  7. IBRANCE [Suspect]
     Active Substance: PALBOCICLIB
     Dosage: 125 MG, CYCLIC (DAY1-21 EVERY 28 DAYS)
     Route: 048
  8. IBRANCE [Suspect]
     Active Substance: PALBOCICLIB
     Dosage: 125 MG, CYCLIC (DAILY X 21 DAYS THEN 7 DAYS OFF)
     Route: 048
     Dates: start: 20160830
  9. IBRANCE [Suspect]
     Active Substance: PALBOCICLIB
     Dosage: 125 MG, CYCLIC (DAY1-21 EVERY 28 DAYS)
     Route: 048
  10. IBRANCE [Suspect]
     Active Substance: PALBOCICLIB
     Dosage: UNK, CYCLIC (ONE CYCLE ONLY)
     Dates: start: 201703
  11. IBRANCE [Suspect]
     Active Substance: PALBOCICLIB
     Dosage: 125 MG, CYCLIC (DAYS 1-21 OF 28DAYS)
     Route: 048
     Dates: start: 20160830
  12. IBRANCE [Suspect]
     Active Substance: PALBOCICLIB
     Indication: BREAST CANCER METASTATIC
     Dosage: 125 MG, CYCLIC (DAY 1-21 EVERY 28 DAYS)
     Route: 048
     Dates: start: 20150925
  13. IBRANCE [Suspect]
     Active Substance: PALBOCICLIB
     Dosage: 125 MG, CYCLIC, (DAY 1-21 EVERY 28 DAYS)
     Route: 048
     Dates: start: 20160430
  14. IBRANCE [Suspect]
     Active Substance: PALBOCICLIB
     Dosage: 125 MG, CYCLIC (DAY 1-21 EVERY 28 DAYS)
     Route: 048
     Dates: start: 20160830
  15. IBRANCE [Suspect]
     Active Substance: PALBOCICLIB
     Dosage: 125 MG, CYCLIC (DAY 1-21 EVERY 28 DAYS)
     Route: 048
     Dates: start: 20160830

REACTIONS (33)
  - Renal failure [Unknown]
  - Skin abrasion [Unknown]
  - Pain in extremity [Unknown]
  - Cough [Unknown]
  - Influenza like illness [Unknown]
  - Pyrexia [Unknown]
  - Abdominal pain upper [Not Recovered/Not Resolved]
  - Urinary incontinence [Unknown]
  - Dehydration [Not Recovered/Not Resolved]
  - Abdominal discomfort [Unknown]
  - Malaise [Unknown]
  - Dyspnoea [Unknown]
  - Oxygen saturation decreased [Unknown]
  - Hypoaesthesia [Unknown]
  - Urine output increased [Unknown]
  - Peripheral swelling [Unknown]
  - Muscle spasms [Not Recovered/Not Resolved]
  - Protein urine present [Unknown]
  - Acute kidney injury [Unknown]
  - Nausea [Unknown]
  - Alopecia [Unknown]
  - Joint swelling [Unknown]
  - Abdominal distension [Unknown]
  - Diarrhoea [Not Recovered/Not Resolved]
  - Stoma site haemorrhage [Unknown]
  - Fatigue [Unknown]
  - Drug dose omission [Unknown]
  - Full blood count decreased [Unknown]
  - Gastrooesophageal reflux disease [Unknown]
  - Blood potassium decreased [Unknown]
  - Depression suicidal [Unknown]
  - Paraesthesia [Unknown]
  - Pain [Unknown]

NARRATIVE: CASE EVENT DATE: 20161229
